FAERS Safety Report 14830039 (Version 1)
Quarter: 2018Q2

REPORT INFORMATION
  Report Type: Spontaneous
  Country: BR (occurrence: BR)
  Receive Date: 20180430
  Receipt Date: 20180430
  Transmission Date: 20180711
  Serious: Yes (Hospitalization)
  Sender: FDA-Public Use
  Company Number: BR-PFIZER INC-2018165165

PATIENT
  Sex: Female

DRUGS (1)
  1. XALKORI [Suspect]
     Active Substance: CRIZOTINIB
     Dosage: 2 DF, DAILY

REACTIONS (5)
  - Asthenia [Unknown]
  - Syncope [Unknown]
  - Oesophageal ulcer [Unknown]
  - Gastrointestinal disorder [Unknown]
  - Feeling abnormal [Unknown]
